FAERS Safety Report 7643912-8 (Version None)
Quarter: 2011Q3

REPORT INFORMATION
  Report Type: 
  Country: None (occurrence: None)
  Receive Date: 20110729
  Receipt Date: 20110419
  Transmission Date: 20111222
  Serious: No
  Sender: FDA-Public Use
  Company Number: US-GLAXOSMITHKLINE-A0924259A

PATIENT
  Sex: Female

DRUGS (3)
  1. FLONASE [Suspect]
     Indication: PRODUCT USED FOR UNKNOWN INDICATION
  2. IMITREX [Suspect]
     Indication: PRODUCT USED FOR UNKNOWN INDICATION
     Dosage: 100MG VARIABLE DOSE
     Route: 048
     Dates: start: 20100320
  3. ADVAIR DISKUS 100/50 [Suspect]
     Indication: PRODUCT USED FOR UNKNOWN INDICATION

REACTIONS (6)
  - DISORIENTATION [None]
  - VOMITING [None]
  - PAIN [None]
  - MALAISE [None]
  - NAUSEA [None]
  - HEADACHE [None]
